FAERS Safety Report 6196188-5 (Version None)
Quarter: 2009Q2

REPORT INFORMATION
  Report Type: 
  Country: None (occurrence: None)
  Receive Date: 20090520
  Receipt Date: 20090511
  Transmission Date: 20091009
  Serious: Yes (Hospitalization)
  Sender: FDA-Public Use
  Company Number: US-BIOGENIDEC-2009BI014561

PATIENT
  Age: 45 Year
  Sex: Female

DRUGS (1)
  1. TYSABRI [Suspect]
     Indication: MULTIPLE SCLEROSIS
     Route: 042
     Dates: start: 20061101, end: 20081009

REACTIONS (8)
  - COORDINATION ABNORMAL [None]
  - DRUG INEFFECTIVE [None]
  - FALL [None]
  - GAIT DISTURBANCE [None]
  - HEMIPARESIS [None]
  - OSTEOPOROSIS [None]
  - POLLAKIURIA [None]
  - URINARY BLADDER HAEMORRHAGE [None]
